FAERS Safety Report 14942285 (Version 1)
Quarter: 2018Q2

REPORT INFORMATION
  Report Type: Spontaneous
  Country: US (occurrence: US)
  Receive Date: 20180528
  Receipt Date: 20180528
  Transmission Date: 20180711
  Serious: Yes (Hospitalization)
  Sender: FDA-Public Use
  Company Number: US-BRISTOL-MYERS SQUIBB COMPANY-BMS-2018-046950

PATIENT
  Sex: Female

DRUGS (1)
  1. OPDIVO [Suspect]
     Active Substance: NIVOLUMAB
     Indication: SQUAMOUS CELL CARCINOMA OF THE CERVIX
     Dosage: UNK, Q2WK
     Route: 042
     Dates: end: 201803

REACTIONS (2)
  - Product use in unapproved indication [Unknown]
  - Generalised oedema [Recovering/Resolving]

NARRATIVE: CASE EVENT DATE: 201803
